FAERS Safety Report 18940368 (Version 1)
Quarter: 2021Q1

REPORT INFORMATION
  Report Type: Spontaneous
  Country: US (occurrence: US)
  Receive Date: 20210225
  Receipt Date: 20210225
  Transmission Date: 20210420
  Serious: Yes (Death)
  Sender: FDA-Public Use
  Company Number: None

PATIENT
  Age: 51 Year
  Sex: Female
  Weight: 41.2 kg

DRUGS (1)
  1. GAZYVA [Suspect]
     Active Substance: OBINUTUZUMAB
     Indication: LYMPHOMA
     Dosage: ?          OTHER FREQUENCY:ONCE;?
     Route: 042
     Dates: start: 20210214, end: 20210214

REACTIONS (8)
  - Dyspnoea [None]
  - Infusion related reaction [None]
  - Tachypnoea [None]
  - Malaise [None]
  - Cardiac arrest [None]
  - Cardiac murmur [None]
  - Tachycardia [None]
  - Breath sounds abnormal [None]

NARRATIVE: CASE EVENT DATE: 20210215
